FAERS Safety Report 10103320 (Version 1)
Quarter: 2014Q2

REPORT INFORMATION
  Report Type: Spontaneous
  Country: US (occurrence: US)
  Receive Date: 20140424
  Receipt Date: 20140424
  Transmission Date: 20141212
  Serious: No
  Sender: FDA-Public Use
  Company Number: US-BRISTOL-MYERS SQUIBB COMPANY-20260972

PATIENT
  Age: 58 Year
  Sex: Male
  Weight: 104.31 kg

DRUGS (7)
  1. ELIQUIS [Suspect]
     Indication: ATRIAL FIBRILLATION
     Dosage: PILLS
     Route: 048
  2. LABETALOL [Concomitant]
  3. METFORMIN [Concomitant]
  4. ATORVASTATIN CALCIUM [Concomitant]
  5. FUROSEMIDE [Concomitant]
  6. INSULIN [Concomitant]
     Dosage: DOSE VALUE:25U QAM,35U QHS
  7. INSULIN [Concomitant]
     Dosage: 1DF = 35 UNITS

REACTIONS (2)
  - Weight decreased [Unknown]
  - Product quality issue [Unknown]
